FAERS Safety Report 9238230 (Version 1)
Quarter: 2013Q2

REPORT INFORMATION
  Report Type: Spontaneous
  Country: SI (occurrence: SI)
  Receive Date: 20130418
  Receipt Date: 20130418
  Transmission Date: 20140414
  Serious: Yes (Other)
  Sender: FDA-Public Use
  Company Number: SI-JNJFOC-20121005433

PATIENT
  Age: 36 Year
  Sex: Female

DRUGS (6)
  1. RISPERDAL CONSTA [Suspect]
     Indication: SCHIZOPHRENIA
     Route: 030
  2. XEPLION [Suspect]
     Indication: SCHIZOPHRENIA
     Route: 030
     Dates: start: 201210
  3. DEPAKINE [Concomitant]
     Route: 065
  4. CYMBALTA [Concomitant]
     Route: 065
  5. HELEX [Concomitant]
     Route: 048
  6. RISPERDAL [Concomitant]
     Route: 048

REACTIONS (2)
  - Neurodermatitis [Not Recovered/Not Resolved]
  - Dermatitis artefacta [Not Recovered/Not Resolved]
